FAERS Safety Report 24546283 (Version 5)
Quarter: 2025Q1

REPORT INFORMATION
  Report Type: Spontaneous
  Country: IT (occurrence: IT)
  Receive Date: 20241024
  Receipt Date: 20250307
  Transmission Date: 20250408
  Serious: Yes (Life-Threatening, Hospitalization, Other)
  Sender: BIOGEN
  Company Number: IT-BIOGEN-2024BI01287197

PATIENT
  Age: 37 Year
  Sex: Male

DRUGS (4)
  1. TOFERSEN [Suspect]
     Active Substance: TOFERSEN
     Indication: Amyotrophic lateral sclerosis
     Route: 050
     Dates: start: 20241010
  2. RILUZOLE [Concomitant]
     Active Substance: RILUZOLE
     Indication: Product used for unknown indication
     Route: 050
     Dates: end: 20241017
  3. SERTRALINE [Concomitant]
     Active Substance: SERTRALINE HYDROCHLORIDE
     Indication: Product used for unknown indication
     Route: 050
     Dates: end: 20241017
  4. OLANZAPINE [Concomitant]
     Active Substance: OLANZAPINE
     Indication: Product used for unknown indication
     Route: 050
     Dates: end: 20241017

REACTIONS (5)
  - Post procedural complication circulatory [Recovered/Resolved]
  - Headache [Recovered/Resolved]
  - Epilepsy [Recovered/Resolved]
  - Encephalitis [Unknown]
  - Intracranial hypotension [Unknown]

NARRATIVE: CASE EVENT DATE: 20241010
